FAERS Safety Report 5737027-3 (Version None)
Quarter: 2008Q2

REPORT INFORMATION
  Report Type: 
  Country: None (occurrence: None)
  Receive Date: 20080514
  Receipt Date: 20080506
  Transmission Date: 20081010
  Serious: Yes (Hospitalization)
  Sender: FDA-Public Use
  Company Number: DE-JNJFOC-20061206506

PATIENT
  Sex: Male
  Weight: 70 kg

DRUGS (7)
  1. REMICADE [Suspect]
     Route: 042
  2. REMICADE [Suspect]
     Route: 042
  3. REMICADE [Suspect]
     Route: 042
  4. REMICADE [Suspect]
     Route: 042
  5. REMICADE [Suspect]
     Indication: CROHN'S DISEASE
     Route: 042
  6. PURINETHOL [Suspect]
     Indication: CROHN'S DISEASE
     Route: 065
  7. PREDNISOLON [Concomitant]
     Indication: CROHN'S DISEASE
     Route: 065

REACTIONS (1)
  - HERPES ZOSTER OPHTHALMIC [None]
